FAERS Safety Report 9920800 (Version 1)
Quarter: 2014Q1

REPORT INFORMATION
  Report Type: Spontaneous
  Country: DE (occurrence: DE)
  Receive Date: 20140224
  Receipt Date: 20140224
  Transmission Date: 20141002
  Serious: Yes (Other)
  Sender: FDA-Public Use
  Company Number: DE-ROCHE-1351779

PATIENT
  Age: 18 Year
  Sex: Male
  Weight: 54 kg

DRUGS (2)
  1. TOCILIZUMAB [Suspect]
     Indication: AUTOINFLAMMATORY DISEASE
     Route: 065
     Dates: start: 201110, end: 201204
  2. TOCILIZUMAB [Suspect]
     Route: 065
     Dates: start: 201205, end: 201208

REACTIONS (7)
  - Hydronephrosis [Recovered/Resolved]
  - Myelofibrosis [Unknown]
  - Pyrexia [Recovered/Resolved]
  - Ureteral disorder [Unknown]
  - Weight decreased [Recovered/Resolved]
  - Abdominal pain [Recovering/Resolving]
  - Constipation [Recovered/Resolved]
